FAERS Safety Report 4680778-2 (Version None)
Quarter: 2005Q2

REPORT INFORMATION
  Report Type: 
  Country: None (occurrence: None)
  Receive Date: 20050603
  Receipt Date: 20050526
  Transmission Date: 20051028
  Serious: Yes (Hospitalization)
  Sender: FDA-Public Use
  Company Number: PHFR2005IE01978

PATIENT
  Age: 28 Year
  Sex: Male

DRUGS (3)
  1. CLOZARIL [Suspect]
     Indication: SCHIZOPHRENIA
     Dosage: 50MG MANE, 100MG NOCTE
     Route: 065
     Dates: start: 20050526
  2. CLOZARIL [Suspect]
     Dosage: 150MG MANE, 200MG NOCTE
     Route: 065
     Dates: start: 20040429
  3. CLOZARIL [Suspect]
     Dosage: 300 MG MANE
     Route: 065
     Dates: start: 20050520

REACTIONS (2)
  - INCORRECT DOSE ADMINISTERED [None]
  - MEDICATION ERROR [None]
